FAERS Safety Report 10708742 (Version 2)
Quarter: 2015Q1

REPORT INFORMATION
  Report Type: Spontaneous
  Country: US (occurrence: US)
  Receive Date: 20150113
  Receipt Date: 20150204
  Transmission Date: 20150721
  Serious: No
  Sender: FDA-Public Use
  Company Number: US-PFIZER INC-2015012973

PATIENT
  Age: 21 Year
  Sex: Female

DRUGS (3)
  1. QUILLIVANT XR [Suspect]
     Active Substance: METHYLPHENIDATE HYDROCHLORIDE
     Indication: ATTENTION DEFICIT/HYPERACTIVITY DISORDER
     Dosage: 2 ML, UNK
     Route: 048
     Dates: start: 201501
  2. QUILLIVANT XR [Suspect]
     Active Substance: METHYLPHENIDATE HYDROCHLORIDE
     Dosage: 2ML OR 2 AND A HALF ML
     Route: 048
     Dates: end: 201501
  3. QUILLIVANT XR [Suspect]
     Active Substance: METHYLPHENIDATE HYDROCHLORIDE
     Dosage: 3 ML, 1X/DAY
     Route: 048

REACTIONS (3)
  - Drug dispensing error [Recovered/Resolved]
  - Dizziness [Recovered/Resolved]
  - Wrong technique in drug usage process [Recovered/Resolved]

NARRATIVE: CASE EVENT DATE: 201501
